FAERS Safety Report 20001864 (Version 1)
Quarter: 2021Q4

REPORT INFORMATION
  Report Type: Spontaneous
  Country: US (occurrence: US)
  Receive Date: 20211027
  Receipt Date: 20211027
  Transmission Date: 20220303
  Serious: Yes (Death, Other)
  Sender: FDA-Public Use
  Company Number: US-PFIZER INC-202101381370

PATIENT
  Age: 78 Year
  Sex: Female

DRUGS (2)
  1. HEPARIN SODIUM [Suspect]
     Active Substance: HEPARIN SODIUM
     Indication: Pulmonary embolism
     Dosage: UNK
     Route: 042
  2. HEPARIN SODIUM [Suspect]
     Active Substance: HEPARIN SODIUM
     Indication: Intracardiac thrombus

REACTIONS (4)
  - Multiple organ dysfunction syndrome [Fatal]
  - Drug ineffective [Fatal]
  - Cardiac arrest [Unknown]
  - Pulseless electrical activity [Unknown]
